FAERS Safety Report 7027033-3 (Version None)
Quarter: 2010Q4

REPORT INFORMATION
  Report Type: 
  Country: None (occurrence: None)
  Receive Date: 20101004
  Receipt Date: 20100924
  Transmission Date: 20110411
  Serious: Yes (Other)
  Sender: FDA-Public Use
  Company Number: US-PURDUE-USA-2010-0047494

PATIENT
  Sex: Male

DRUGS (3)
  1. OXYCONTIN [Suspect]
     Indication: CONGENITAL CYSTIC KIDNEY DISEASE
     Dosage: 40 MG, UNK
     Dates: start: 20100901
  2. OXYCONTIN [Suspect]
     Indication: BACK INJURY
  3. OXYCONTIN [Suspect]
     Indication: NECK INJURY

REACTIONS (2)
  - MEDICAL DEVICE COMPLICATION [None]
  - VOMITING [None]
